FAERS Safety Report 11149133 (Version 1)
Quarter: 2015Q2

REPORT INFORMATION
  Report Type: Spontaneous
  Country: US (occurrence: None)
  Receive Date: 20150528
  Receipt Date: 20150528
  Transmission Date: 20150821
  Serious: Yes (Disabling)
  Sender: FDA-Public Use
  Company Number: None

PATIENT
  Age: 56 Year
  Sex: Female
  Weight: 113.4 kg

DRUGS (10)
  1. LOSARTAN [Concomitant]
     Active Substance: LOSARTAN
  2. FISH OIL [Concomitant]
     Active Substance: FISH OIL
  3. DEXLIANT [Concomitant]
  4. VIT K ANTAGONISTS [Concomitant]
     Active Substance: UNSPECIFIED INGREDIENT
  5. VITAMIN B12 [Concomitant]
     Active Substance: CYANOCOBALAMIN
  6. LOVASTATIN. [Concomitant]
     Active Substance: LOVASTATIN
  7. CALCIUM [Concomitant]
     Active Substance: CALCIUM
  8. VITAMIN D [Concomitant]
     Active Substance: CHOLECALCIFEROL
  9. MELATONIN [Concomitant]
     Active Substance: MELATONIN
  10. NEXIUM [Suspect]
     Active Substance: ESOMEPRAZOLE MAGNESIUM
     Indication: GASTROOESOPHAGEAL REFLUX DISEASE
     Dosage: 40 MG ONCE DAILY TAKEN BY MOUTH
     Route: 048

REACTIONS (12)
  - Myalgia [None]
  - Asthenia [None]
  - Fatigue [None]
  - Arthritis [None]
  - Loss of consciousness [None]
  - Pain [None]
  - Bone pain [None]
  - Depressed level of consciousness [None]
  - Bone loss [None]
  - Mental impairment [None]
  - Osteopenia [None]
  - Insomnia [None]

NARRATIVE: CASE EVENT DATE: 20060701
